FAERS Safety Report 8274673-X (Version None)
Quarter: 2012Q2

REPORT INFORMATION
  Report Type: 
  Country: None (occurrence: None)
  Receive Date: 20120411
  Receipt Date: 20120405
  Transmission Date: 20120825
  Serious: Yes (Other)
  Sender: FDA-Public Use
  Company Number: JP-GLAXOSMITHKLINE-B0794100A

PATIENT
  Sex: Female

DRUGS (1)
  1. RELENZA [Suspect]
     Indication: INFLUENZA
     Dosage: 2IUAX PER DAY
     Route: 055
     Dates: start: 20120305, end: 20120305

REACTIONS (18)
  - SCHIZOPHRENIA [None]
  - PHOTOPSIA [None]
  - DYSPHONIA [None]
  - PYREXIA [None]
  - PALPITATIONS [None]
  - EAR DISCOMFORT [None]
  - CONVULSION [None]
  - RHINORRHOEA [None]
  - CONVERSION DISORDER [None]
  - MUSCLE SPASMS [None]
  - SCREAMING [None]
  - AFFECT LABILITY [None]
  - ASTHENIA [None]
  - DRY SKIN [None]
  - PRURITUS GENERALISED [None]
  - DANDRUFF [None]
  - PRODUCTIVE COUGH [None]
  - DYSPNOEA [None]
